FAERS Safety Report 9420738 (Version 1)
Quarter: 2013Q3

REPORT INFORMATION
  Report Type: Spontaneous
  Country: US (occurrence: US)
  Receive Date: 20130725
  Receipt Date: 20130725
  Transmission Date: 20140515
  Serious: Yes (Hospitalization, Other)
  Sender: FDA-Public Use
  Company Number: US-PFIZER INC-2013209133

PATIENT
  Sex: 0

DRUGS (3)
  1. VFEND [Suspect]
     Indication: INFECTION
     Dosage: UNK
     Route: 048
  2. VFEND [Suspect]
     Indication: INFECTION
     Dosage: 150 MG, UNK
     Route: 042
  3. VFEND [Suspect]
     Dosage: 300 MG, UNK

REACTIONS (6)
  - Pyrexia [Unknown]
  - Colitis [Unknown]
  - Oral disorder [Unknown]
  - Hallucination [Recovered/Resolved]
  - Drug level decreased [Unknown]
  - Product packaging issue [Unknown]
